FAERS Safety Report 8836645 (Version 1)
Quarter: 2012Q4

REPORT INFORMATION
  Report Type: Spontaneous
  Country: IN (occurrence: None)
  Receive Date: 20121009
  Receipt Date: 20121009
  Transmission Date: 20130627
  Serious: Yes (Life-Threatening, Hospitalization)
  Sender: FDA-Public Use
  Company Number: IN-MACLEODS PHARMA-000029

PATIENT
  Age: 24 Year
  Sex: Female

DRUGS (1)
  1. AMLODIPINE (AMLODIPINE) [Suspect]

REACTIONS (18)
  - Suicidal ideation [None]
  - Nausea [None]
  - Vomiting [None]
  - Abdominal pain [None]
  - Dyspnoea [None]
  - Blood pressure systolic decreased [None]
  - Anxiety [None]
  - Oxygen saturation decreased [None]
  - Blood pH decreased [None]
  - Blood glucose increased [None]
  - Sinus tachycardia [None]
  - Somnolence [None]
  - Intentional overdose [None]
  - Rales [None]
  - Haemoglobin decreased [None]
  - Blood urea increased [None]
  - Blood creatinine increased [None]
  - Chest X-ray abnormal [None]
